FAERS Safety Report 6823056-5 (Version None)
Quarter: 2010Q3

REPORT INFORMATION
  Report Type: 
  Country: None (occurrence: None)
  Receive Date: 20100708
  Receipt Date: 20100630
  Transmission Date: 20110219
  Serious: Yes (Other)
  Sender: FDA-Public Use
  Company Number: B0663708A

PATIENT
  Sex: Female

DRUGS (1)
  1. VALTREX [Suspect]
     Indication: PRODUCT USED FOR UNKNOWN INDICATION
     Dosage: 3000IUAX PER DAY
     Route: 048

REACTIONS (7)
  - ALTERED STATE OF CONSCIOUSNESS [None]
  - CONSTIPATION [None]
  - DYSSTASIA [None]
  - EYE SWELLING [None]
  - FACE OEDEMA [None]
  - FEELING ABNORMAL [None]
  - SENILE DEMENTIA [None]
